FAERS Safety Report 15078777 (Version 1)
Quarter: 2018Q2

REPORT INFORMATION
  Report Type: Report from Study
  Country: US (occurrence: US)
  Receive Date: 20180627
  Receipt Date: 20180627
  Transmission Date: 20180711
  Serious: No
  Sender: FDA-Public Use
  Company Number: US-AMGEN-USASL2017020275

PATIENT
  Age: 65 Year
  Sex: Female

DRUGS (7)
  1. VITAMIN D [Concomitant]
     Active Substance: CHOLECALCIFEROL
     Dosage: 1000 UNIT, UNK
  2. PROLIA [Suspect]
     Active Substance: DENOSUMAB
     Indication: HYPERPARATHYROIDISM
  3. CALCIUM [Concomitant]
     Active Substance: CALCIUM
     Dosage: UNK UNK, QD
  4. PROLIA [Suspect]
     Active Substance: DENOSUMAB
     Indication: OSTEOPOROSIS
     Dosage: 60 MG, Q6MO
     Route: 058
  5. PROLIA [Suspect]
     Active Substance: DENOSUMAB
     Indication: HYPERCALCAEMIA
  6. PROLIA [Suspect]
     Active Substance: DENOSUMAB
     Indication: VITAMIN D DEFICIENCY
  7. PROLIA [Suspect]
     Active Substance: DENOSUMAB
     Indication: BONE DISORDER

REACTIONS (1)
  - Off label use [Unknown]
